FAERS Safety Report 12506846 (Version 2)
Quarter: 2016Q3

REPORT INFORMATION
  Report Type: Spontaneous
  Country: JP (occurrence: JP)
  Receive Date: 20160629
  Receipt Date: 20160727
  Transmission Date: 20161109
  Serious: Yes (Hospitalization, Other)
  Sender: FDA-Public Use
  Company Number: JP-AMGEN-JPNSP2016081815

PATIENT
  Age: 63 Year
  Sex: Female

DRUGS (3)
  1. ENBREL [Suspect]
     Active Substance: ETANERCEPT
     Indication: RHEUMATOID ARTHRITIS
     Dosage: 25 MG,  PER 5 DAYS
     Route: 058
  2. PREDNISOLONE. [Concomitant]
     Active Substance: PREDNISOLONE
     Indication: RHEUMATOID ARTHRITIS
     Dosage: 5 MG, 1X/DAY
     Route: 048
  3. CARERAM [Concomitant]
     Active Substance: IGURATIMOD
     Indication: RHEUMATOID ARTHRITIS
     Dosage: 25 MG, 2X/DAY
     Route: 048

REACTIONS (8)
  - Erythema [Unknown]
  - Pruritus [Recovering/Resolving]
  - Erythema of eyelid [Unknown]
  - Haemorrhage subcutaneous [Recovering/Resolving]
  - Eyelid oedema [Unknown]
  - Face oedema [Unknown]
  - Cushingoid [Unknown]
  - Dizziness [Unknown]

NARRATIVE: CASE EVENT DATE: 20160614
